FAERS Safety Report 24882054 (Version 2)
Quarter: 2025Q1

REPORT INFORMATION
  Report Type: Report from Study
  Country: JP (occurrence: JP)
  Receive Date: 20250124
  Receipt Date: 20250303
  Transmission Date: 20250409
  Serious: Yes (Hospitalization)
  Sender: ABBVIE
  Company Number: JP-ABBVIE-5691935

PATIENT
  Age: 57 Year
  Sex: Male

DRUGS (1)
  1. VYALEV [Suspect]
     Active Substance: FOSCARBIDOPA\FOSLEVODOPA
     Indication: Parkinson^s disease
     Route: 058
     Dates: start: 20240304

REACTIONS (7)
  - Malaise [Unknown]
  - Therapeutic product effect incomplete [Not Recovered/Not Resolved]
  - Mobility decreased [Unknown]
  - Musculoskeletal stiffness [Unknown]
  - Infusion site erythema [Unknown]
  - Movement disorder [Unknown]
  - Infusion site swelling [Unknown]

NARRATIVE: CASE EVENT DATE: 20240402
